FAERS Safety Report 5983073-4 (Version None)
Quarter: 2008Q4

REPORT INFORMATION
  Report Type: 
  Country: None (occurrence: None)
  Receive Date: 20081208
  Receipt Date: 20081125
  Transmission Date: 20090506
  Serious: Yes (Other)
  Sender: FDA-Public Use
  Company Number: US-ROCHE-599381

PATIENT
  Sex: Female

DRUGS (8)
  1. VALIUM [Suspect]
     Route: 065
     Dates: start: 19760101
  2. DIAZEPAM [Suspect]
     Route: 065
     Dates: start: 20080801
  3. LORTAB [Concomitant]
  4. UNKNOWN OINTMENT [Concomitant]
  5. METFORMIN HCL [Concomitant]
     Dosage: DRUG ON AND OFF
     Dates: start: 20080101
  6. TESSALON [Concomitant]
     Dosage: DRUG REPORTED AS TESSOLON PEARL
  7. THEOPHYLLINE [Concomitant]
  8. SOMA [Concomitant]

REACTIONS (7)
  - ASTHMA [None]
  - BLISTER [None]
  - DIABETES MELLITUS [None]
  - ECZEMA [None]
  - FIBROMYALGIA [None]
  - HYPERTENSION [None]
  - STAPHYLOCOCCAL INFECTION [None]
